FAERS Safety Report 5841965-0 (Version None)
Quarter: 2008Q3

REPORT INFORMATION
  Report Type: 
  Country: None (occurrence: None)
  Receive Date: 20080812
  Receipt Date: 20080805
  Transmission Date: 20090109
  Serious: Yes (Other)
  Sender: FDA-Public Use
  Company Number: GB-ABBOTT-08P-167-0468946-00

PATIENT
  Age: 44 Year
  Weight: 137.2 kg

DRUGS (2)
  1. SIBUTRAMINE [Suspect]
     Indication: OBESITY
     Dates: start: 20061208, end: 20070815
  2. ACETAMINOPHEN W/ CODEINE [Concomitant]
     Indication: DRUG USE FOR UNKNOWN INDICATION

REACTIONS (5)
  - AMENORRHOEA [None]
  - BLOOD FOLLICLE STIMULATING HORMONE INCREASED [None]
  - HOT FLUSH [None]
  - HYPERHIDROSIS [None]
  - INFERTILITY [None]
